FAERS Safety Report 8104426-4 (Version None)
Quarter: 2012Q1

REPORT INFORMATION
  Report Type: 
  Country: None (occurrence: None)
  Receive Date: 20120130
  Receipt Date: 20120118
  Transmission Date: 20120608
  Serious: Yes (Other)
  Sender: FDA-Public Use
  Company Number: GB-JNJFOC-20111205002

PATIENT
  Sex: Male

DRUGS (7)
  1. ETORICOXIB [Concomitant]
     Indication: PRODUCT USED FOR UNKNOWN INDICATION
     Route: 048
  2. PREGABALIN [Concomitant]
     Indication: PRODUCT USED FOR UNKNOWN INDICATION
     Route: 048
  3. AMITRIPTYLINE HCL [Concomitant]
     Indication: PRODUCT USED FOR UNKNOWN INDICATION
     Route: 048
  4. PALEXIA [Suspect]
     Route: 048
     Dates: start: 20111108, end: 20111128
  5. PALEXIA [Suspect]
     Dosage: THE PRESCRIPTION WAS SUPPOSED TO BE 150MG OF TAPENTADOL IN THE MORNING AND 200MG IN THE EVENING
     Route: 048
     Dates: start: 20111129, end: 20111130
  6. ACETAMINOPHEN [Concomitant]
     Indication: PRODUCT USED FOR UNKNOWN INDICATION
     Route: 048
  7. PALEXIA [Suspect]
     Indication: PHANTOM PAIN
     Dosage: UP TO 200 MG TWICE DAILY
     Route: 048
     Dates: start: 20111201

REACTIONS (3)
  - OVERDOSE [None]
  - THERAPEUTIC RESPONSE UNEXPECTED [None]
  - DRUG DISPENSING ERROR [None]
